FAERS Safety Report 20808558 (Version 1)
Quarter: 2022Q2

REPORT INFORMATION
  Report Type: Spontaneous
  Country: US (occurrence: None)
  Receive Date: 20220509
  Receipt Date: 20220509
  Transmission Date: 20220721
  Serious: Yes (Other)
  Sender: FDA-Public Use
  Company Number: None

PATIENT
  Age: 51 Year
  Sex: Female

DRUGS (5)
  1. TACROLIMUS [Suspect]
     Active Substance: TACROLIMUS
     Indication: Lichen sclerosus
     Dosage: OTHER QUANTITY : 30 30 GM;?FREQUENCY : TWICE A DAY;?
     Route: 062
     Dates: start: 20220405, end: 20220430
  2. CLOBETASOL [Concomitant]
     Active Substance: CLOBETASOL
  3. VITAMIN B [Suspect]
     Active Substance: VITAMIN B
  4. VITAMIN E [Concomitant]
     Active Substance: .ALPHA.-TOCOPHEROL
  5. Womens Multivitamin Supplement [Concomitant]

REACTIONS (2)
  - Atrophic vulvovaginitis [None]
  - Burning sensation [None]

NARRATIVE: CASE EVENT DATE: 20220405
